FAERS Safety Report 23336831 (Version 1)
Quarter: 2023Q4

REPORT INFORMATION
  Report Type: Report from Study
  Country: US (occurrence: US)
  Receive Date: 20231226
  Receipt Date: 20231226
  Transmission Date: 20240109
  Serious: Yes (Hospitalization, Other)
  Sender: FDA-Public Use
  Company Number: US-ABBVIE-5555295

PATIENT
  Sex: Female

DRUGS (1)
  1. HUMIRA [Suspect]
     Active Substance: ADALIMUMAB
     Indication: Rheumatoid arthritis
     Dosage: FORM STRENGTH: 40 MILLIGRAM
     Route: 058
     Dates: start: 20230912

REACTIONS (4)
  - Ulcer haemorrhage [Recovered/Resolved]
  - Haematochezia [Unknown]
  - Loss of consciousness [Unknown]
  - Haematemesis [Unknown]

NARRATIVE: CASE EVENT DATE: 20230101
